FAERS Safety Report 9747605 (Version 1)
Quarter: 2013Q4

REPORT INFORMATION
  Report Type: Spontaneous
  Country: SG (occurrence: None)
  Receive Date: 20131206
  Receipt Date: 20131206
  Transmission Date: 20140711
  Serious: Yes (Death)
  Sender: FDA-Public Use
  Company Number: BD-2013-0030

PATIENT
  Sex: 0

DRUGS (2)
  1. METOCLOPRAMIDE (METOCLOPRAMIDE) INJECTION, 5MG/ML [Suspect]
     Indication: PRODUCT USED FOR UNKNOWN INDICATION
     Route: 042
  2. PETHIDINE (PETHIDINE) [Concomitant]

REACTIONS (1)
  - Acute myocardial infarction [None]
